FAERS Safety Report 16652693 (Version 1)
Quarter: 2019Q3

REPORT INFORMATION
  Report Type: Report from Study
  Country: BR (occurrence: BR)
  Receive Date: 20190731
  Receipt Date: 20190731
  Transmission Date: 20191004
  Serious: Yes (Hospitalization)
  Sender: FDA-Public Use
  Company Number: BR-JNJFOC-20190737925

PATIENT
  Sex: Female

DRUGS (4)
  1. PRELONE [Concomitant]
     Active Substance: PREDNISOLONE
  2. SIMPONI [Suspect]
     Active Substance: GOLIMUMAB
     Indication: RHEUMATOID ARTHRITIS
     Route: 058
     Dates: end: 201905
  3. DIOVAN [Concomitant]
     Active Substance: VALSARTAN
  4. MIRTAZAPINE. [Concomitant]
     Active Substance: MIRTAZAPINE

REACTIONS (1)
  - Skin cancer [Unknown]
